FAERS Safety Report 4517312-3 (Version None)
Quarter: 2004Q4

REPORT INFORMATION
  Report Type: 
  Country: None (occurrence: None)
  Receive Date: 20041008
  Receipt Date: 20040621
  Transmission Date: 20050328
  Serious: No
  Sender: FDA-Public Use
  Company Number: 2004S1000140

PATIENT
  Age: 52 Year
  Sex: Male
  Weight: 125 kg

DRUGS (6)
  1. CUBICIN [Suspect]
     Indication: OSTEOMYELITIS
     Dosage: 750 MG; Q24H; IV
     Route: 042
     Dates: start: 20040607, end: 20040708
  2. CUBICIN [Suspect]
     Indication: STAPHYLOCOCCAL INFECTION
     Dosage: 750 MG; Q24H; IV
     Route: 042
     Dates: start: 20040607, end: 20040708
  3. ZOCOR [Concomitant]
  4. NORVASC [Concomitant]
  5. INSULIN [Concomitant]
  6. HUMALOG [Concomitant]

REACTIONS (3)
  - ASPARTATE AMINOTRANSFERASE INCREASED [None]
  - BLOOD CREATINE PHOSPHOKINASE INCREASED [None]
  - PAIN IN EXTREMITY [None]
